FAERS Safety Report 25608643 (Version 1)
Quarter: 2025Q3

REPORT INFORMATION
  Report Type: Spontaneous
  Country: EU (occurrence: EU)
  Receive Date: 20250726
  Receipt Date: 20250726
  Transmission Date: 20251020
  Serious: Yes (Life-Threatening, Hospitalization)
  Sender: ACCORD
  Company Number: None

PATIENT
  Age: 44 Year
  Sex: Male

DRUGS (4)
  1. QUETIAPINE [Interacting]
     Active Substance: QUETIAPINE
     Indication: Intentional overdose
     Dates: start: 20250323, end: 20250323
  2. FLUOXETINE HYDROCHLORIDE [Interacting]
     Active Substance: FLUOXETINE HYDROCHLORIDE
     Indication: Intentional overdose
     Dates: start: 20250323, end: 20250323
  3. TOPIRAMATE [Interacting]
     Active Substance: TOPIRAMATE
     Indication: Intentional overdose
     Dates: start: 20250323, end: 20250323
  4. LORMETAZEPAM [Interacting]
     Active Substance: LORMETAZEPAM
     Indication: Intentional overdose
     Dates: start: 20250323, end: 20250323

REACTIONS (2)
  - Intentional overdose [Recovered/Resolved]
  - Depressed level of consciousness [Recovered/Resolved]

NARRATIVE: CASE EVENT DATE: 20250323
